FAERS Safety Report 5618393-6 (Version None)
Quarter: 2008Q1

REPORT INFORMATION
  Report Type: 
  Country: None (occurrence: None)
  Receive Date: 20080205
  Receipt Date: 20080205
  Transmission Date: 20080703
  Serious: Yes (Other)
  Sender: FDA-Public Use
  Company Number: None

PATIENT
  Age: 74 Year
  Sex: Male
  Weight: 76.6579 kg

DRUGS (1)
  1. CHANTIX [Suspect]
     Indication: SMOKING CESSATION THERAPY
     Dosage: 2 DAILY PO
     Route: 048
     Dates: start: 20071027, end: 20080128

REACTIONS (8)
  - AGITATION [None]
  - ARTHRALGIA [None]
  - BACK PAIN [None]
  - DEPRESSION [None]
  - INSOMNIA [None]
  - PRURITUS [None]
  - RASH [None]
  - SELF ESTEEM DECREASED [None]
